FAERS Safety Report 20657119 (Version 3)
Quarter: 2022Q2

REPORT INFORMATION
  Report Type: Report from Study
  Country: CZ (occurrence: CZ)
  Receive Date: 20220331
  Receipt Date: 20220421
  Transmission Date: 20220721
  Serious: Yes (Death)
  Sender: FDA-Public Use
  Company Number: CZ-ABBVIE-22K-217-4339941-00

PATIENT
  Age: 84 Year
  Sex: Male
  Weight: 66 kg

DRUGS (12)
  1. CARBIDOPA\LEVODOPA [Suspect]
     Active Substance: CARBIDOPA\LEVODOPA
     Indication: Parkinson^s disease
     Dosage: MORNING DOSE 6.2 ML, CONTINUOUS DOSE 3.3 ML PER HOUR 20 MG/ML 5 MG/ML
     Route: 050
     Dates: start: 20210524, end: 20220329
  2. CARBIDOPA\LEVODOPA [Suspect]
     Active Substance: CARBIDOPA\LEVODOPA
     Dosage: 20 MG/ML 5 MG/ML
     Route: 050
  3. STACAPOLO [Concomitant]
     Indication: Parkinson^s disease
     Dosage: DURING NIGHT
     Route: 048
     Dates: start: 20200107, end: 20220329
  4. MIRTAZAPINE [Concomitant]
     Active Substance: MIRTAZAPINE
     Indication: Prophylaxis
     Route: 048
     Dates: start: 20201020, end: 20220329
  5. XARELTO [Concomitant]
     Active Substance: RIVAROXABAN
     Indication: Thrombosis prophylaxis
     Route: 048
     Dates: start: 2014, end: 20220329
  6. METOPROLOL SUCCINATE [Concomitant]
     Active Substance: METOPROLOL SUCCINATE
     Indication: Hypertension
     Route: 048
     Dates: end: 20220329
  7. ATORVASTATIN CALCIUM [Concomitant]
     Active Substance: ATORVASTATIN CALCIUM
     Indication: Blood cholesterol abnormal
     Route: 048
     Dates: end: 20220329
  8. OMEPRAZOLE [Concomitant]
     Active Substance: OMEPRAZOLE
     Indication: Prophylaxis against gastrointestinal ulcer
     Route: 048
     Dates: end: 20220329
  9. PREDNISONE [Concomitant]
     Active Substance: PREDNISONE
     Indication: Dermatitis atopic
     Route: 048
     Dates: end: 20220329
  10. FOLIC ACID [Concomitant]
     Active Substance: FOLIC ACID
     Indication: Prophylaxis
     Route: 048
     Dates: start: 20210524, end: 20220329
  11. B-KOMPLEX FORTE-HEVERT [Concomitant]
     Indication: Prophylaxis
     Route: 048
     Dates: start: 20210524, end: 20220329
  12. DERIN [Concomitant]
     Indication: Prophylaxis
     Route: 048
     Dates: start: 20210524, end: 20220329

REACTIONS (1)
  - Cardiac arrest [Fatal]
